FAERS Safety Report 23511571 (Version 1)
Quarter: 2024Q1

REPORT INFORMATION
  Report Type: Spontaneous
  Country: GB (occurrence: GB)
  Receive Date: 20240212
  Receipt Date: 20240212
  Transmission Date: 20240410
  Serious: Yes (Other)
  Sender: FDA-Public Use
  Company Number: None

PATIENT
  Age: 78 Year
  Sex: Female
  Weight: 62 kg

DRUGS (4)
  1. TRIMETHOPRIM [Suspect]
     Active Substance: TRIMETHOPRIM
     Dosage: DURATION: 2 DAYS
     Route: 065
     Dates: start: 20240131, end: 20240202
  2. BETAMETHASONE [Concomitant]
     Active Substance: BETAMETHASONE\BETAMETHASONE DIPROPIONATE
     Dosage: DISSOLVE IN 20ML WATER AS USE AS MOUTH WASH AS DIRECTED BD FOR 2W FOR FLAREUPS, DURATION: 43 DAYS
     Dates: start: 20231120, end: 20240102
  3. CLOTRIMAZOLE\HYDROCORTISONE [Concomitant]
     Active Substance: CLOTRIMAZOLE\HYDROCORTISONE
     Dosage: DURATION: 14 DAYS
     Dates: start: 20240126
  4. NITROFURANTOIN [Concomitant]
     Active Substance: NITROFURANTOIN
     Dosage: WITH FOOD
     Dates: start: 20240126

REACTIONS (3)
  - Angioedema [Recovering/Resolving]
  - Dysphagia [Unknown]
  - Pharyngeal swelling [Unknown]

NARRATIVE: CASE EVENT DATE: 20240201
